FAERS Safety Report 4323173-8 (Version None)
Quarter: 2004Q1

REPORT INFORMATION
  Report Type: 
  Country: None (occurrence: None)
  Receive Date: 20040322
  Receipt Date: 20040308
  Transmission Date: 20041129
  Serious: Yes (Death)
  Sender: FDA-Public Use
  Company Number: DSA_70210_2004

PATIENT
  Age: 37 Year
  Sex: Female

DRUGS (3)
  1. ROXICODONE [Suspect]
  2. DURAGESIC [Suspect]
  3. COCAINE [Concomitant]

REACTIONS (1)
  - DRUG TOXICITY [None]
